FAERS Safety Report 5285717-1 (Version None)
Quarter: 2007Q1

REPORT INFORMATION
  Report Type: 
  Country: None (occurrence: None)
  Receive Date: 20070126
  Receipt Date: 20061122
  Transmission Date: 20070707
  Serious: No
  Sender: FDA-Public Use
  Company Number: 2006-BP-13734BP

PATIENT
  Age: 64 Year
  Sex: Male

DRUGS (1)
  1. APTIVUS/RITONAVIR CAPSULES (TIPRANAVIR) [Suspect]
     Dosage: (SEE TEXT,TPV/R 250/100MG)

REACTIONS (3)
  - HYPERSENSITIVITY [None]
  - OEDEMA MOUTH [None]
  - SWELLING FACE [None]
